FAERS Safety Report 5107629-6 (Version None)
Quarter: 2006Q3

REPORT INFORMATION
  Report Type: 
  Country: None (occurrence: None)
  Receive Date: 20060731
  Receipt Date: 20060407
  Transmission Date: 20061208
  Serious: No
  Sender: FDA-Public Use
  Company Number: 2006PV011668

PATIENT
  Age: 37 Year
  Sex: Female

DRUGS (6)
  1. BYETTA [Suspect]
     Indication: DIABETES MELLITUS NON-INSULIN-DEPENDENT
     Dosage: 5 MCG;BID;SC
     Route: 058
     Dates: start: 20060303
  2. WELLBUTRIN [Concomitant]
  3. EFFEXOR [Concomitant]
  4. LOMECTROL [Concomitant]
  5. NOSAC [Concomitant]
  6. XANAX [Concomitant]

REACTIONS (10)
  - BLOOD GLUCOSE DECREASED [None]
  - EAR INFECTION [None]
  - ENERGY INCREASED [None]
  - EPISTAXIS [None]
  - FATIGUE [None]
  - FEELING ABNORMAL [None]
  - NAUSEA [None]
  - SINUSITIS [None]
  - SOMNOLENCE [None]
  - TREMOR [None]
